FAERS Safety Report 5951518-1 (Version None)
Quarter: 2008Q4

REPORT INFORMATION
  Report Type: 
  Country: None (occurrence: None)
  Receive Date: 20081113
  Receipt Date: 20081105
  Transmission Date: 20090506
  Serious: Yes (Hospitalization)
  Sender: FDA-Public Use
  Company Number: US-AVENTIS-200817510US

PATIENT
  Age: 71 Year
  Sex: Male

DRUGS (11)
  1. LOVENOX [Suspect]
     Indication: ANTICOAGULANT THERAPY
     Dosage: DOSE: UNK
  2. PLAVIX [Suspect]
     Indication: STENT PLACEMENT
     Route: 048
     Dates: start: 20030801
  3. COUMADIN [Suspect]
     Dosage: DOSE: 5MG AND 7.5MG EVERY THURSDAY
  4. METOPROLOL TARTRATE [Concomitant]
     Route: 048
  5. NIACIN [Concomitant]
     Route: 048
  6. PROPOXYPHENE [Concomitant]
     Route: 048
  7. VIOXX [Concomitant]
     Route: 048
  8. ULTRAM [Concomitant]
     Route: 048
  9. ATAZID [Concomitant]
     Dosage: DOSE: 16/12.5
     Route: 048
  10. XALATAN [Concomitant]
     Dosage: DOSE: UNK
     Route: 031
  11. VITAMINS NOS [Concomitant]
     Dosage: DOSE: UNK

REACTIONS (5)
  - CATHETER SITE SWELLING [None]
  - CONTUSION [None]
  - DEEP VEIN THROMBOSIS [None]
  - DYSPNOEA EXERTIONAL [None]
  - OEDEMA PERIPHERAL [None]
